FAERS Safety Report 18707252 (Version 1)
Quarter: 2021Q1

REPORT INFORMATION
  Report Type: Spontaneous
  Country: NO (occurrence: NO)
  Receive Date: 20210106
  Receipt Date: 20210106
  Transmission Date: 20210419
  Serious: Yes (Hospitalization)
  Sender: FDA-Public Use
  Company Number: NO-009507513-2101NOR000895

PATIENT
  Age: 78 Year
  Sex: Female

DRUGS (12)
  1. VENTOLINE (ALBUTEROL SULFATE) [Concomitant]
     Active Substance: ALBUTEROL SULFATE
  2. LOMUDAL [Concomitant]
     Dosage: STRENGHT: 20 MILLIGRAMS/ MILILLITERS
  3. ALLOPUR [Concomitant]
     Active Substance: ALLOPURINOL
  4. SINGULAIR [Concomitant]
     Active Substance: MONTELUKAST SODIUM
  5. LIPITOR [Concomitant]
     Active Substance: ATORVASTATIN CALCIUM
  6. ZYRTEC [Concomitant]
     Active Substance: CETIRIZINE HYDROCHLORIDE
  7. NASONEX [Concomitant]
     Active Substance: MOMETASONE FUROATE
  8. ELOCON [Concomitant]
     Active Substance: MOMETASONE FUROATE
  9. INUXAIR [Concomitant]
  10. JANUVIA [Suspect]
     Active Substance: SITAGLIPTIN PHOSPHATE
     Indication: TYPE 2 DIABETES MELLITUS
     Dosage: 100 MILLIGRAMS, QD
     Route: 048
  11. ACETAMINOPHEN. [Concomitant]
     Active Substance: ACETAMINOPHEN
  12. JARDIANCE [Concomitant]
     Active Substance: EMPAGLIFLOZIN

REACTIONS (1)
  - Interstitial lung disease [Not Recovered/Not Resolved]

NARRATIVE: CASE EVENT DATE: 2020
